FAERS Safety Report 5070182-X (Version None)
Quarter: 2006Q3

REPORT INFORMATION
  Report Type: 
  Country: None (occurrence: None)
  Receive Date: 20060803
  Receipt Date: 20060726
  Transmission Date: 20061208
  Serious: Yes (Hospitalization)
  Sender: FDA-Public Use
  Company Number: DE-BOEHRINGER INGELHEIM PHARMACEUTICALS, INC.-2006-DE-03977DE

PATIENT
  Sex: Female

DRUGS (5)
  1. MIRAPEXIN [Suspect]
     Indication: PARKINSON'S DISEASE
     Route: 048
     Dates: end: 20060713
  2. SIFROL [Suspect]
     Indication: PARKINSON'S DISEASE
  3. STALEVO 100 [Concomitant]
     Indication: PARKINSON'S DISEASE
     Dosage: 100/25/200, 3X1
     Route: 048
  4. LEVODOPA RET [Concomitant]
     Indication: PARKINSON'S DISEASE
     Dosage: 100/25, 1X/1
     Route: 048
  5. STALEVO 100 [Concomitant]
     Dosage: 150/37,5/200, 2X1
     Route: 048

REACTIONS (12)
  - ASPARTATE AMINOTRANSFERASE INCREASED [None]
  - BLOOD CREATINE PHOSPHOKINASE INCREASED [None]
  - BLOOD LACTATE DEHYDROGENASE INCREASED [None]
  - BLOOD UREA INCREASED [None]
  - CONFUSIONAL STATE [None]
  - DYSTONIA [None]
  - FALL [None]
  - GAIT DISTURBANCE [None]
  - MUSCULAR WEAKNESS [None]
  - POSTURE ABNORMAL [None]
  - TORTICOLLIS [None]
  - URINARY TRACT INFECTION [None]
